FAERS Safety Report 7941545-7 (Version None)
Quarter: 2011Q4

REPORT INFORMATION
  Report Type: 
  Country: None (occurrence: None)
  Receive Date: 20111122
  Receipt Date: 20111122
  Transmission Date: 20120403
  Serious: Yes (Other)
  Sender: FDA-Public Use
  Company Number: None

PATIENT
  Sex: Male
  Weight: 68.0396 kg

DRUGS (1)
  1. METFORMIN HCL [Suspect]
     Indication: TYPE 2 DIABETES MELLITUS
     Dosage: 1 TABLET THREE TIMES A DAY WITH MEALS
     Dates: start: 20110926, end: 20111020

REACTIONS (2)
  - PRODUCT SUBSTITUTION ISSUE [None]
  - PANCREATITIS [None]
